FAERS Safety Report 11891765 (Version 1)
Quarter: 2016Q1

REPORT INFORMATION
  Report Type: Spontaneous
  Country: US (occurrence: None)
  Receive Date: 20160105
  Receipt Date: 20160105
  Transmission Date: 20160526
  Serious: Yes (Other)
  Sender: FDA-Public Use
  Company Number: None

PATIENT
  Age: 59 Year
  Sex: Male
  Weight: 129.28 kg

DRUGS (1)
  1. TOUJEO [Suspect]
     Active Substance: INSULIN GLARGINE
     Indication: DIABETES MELLITUS
     Dosage: 50 UNITS, GIVEN INTO/UNDER THE SKIN
     Dates: start: 20150501, end: 20160104

REACTIONS (3)
  - Product packaging issue [None]
  - Extra dose administered [None]
  - Drug dose omission [None]

NARRATIVE: CASE EVENT DATE: 20160104
